FAERS Safety Report 11744175 (Version 1)
Quarter: 2015Q4

REPORT INFORMATION
  Report Type: Spontaneous
  Country: US (occurrence: US)
  Receive Date: 20151116
  Receipt Date: 20151116
  Transmission Date: 20160304
  Serious: Yes (Hospitalization)
  Sender: FDA-Public Use
  Company Number: US-BAXTER-2015BAX060389

PATIENT
  Age: 63 Year
  Sex: Male

DRUGS (1)
  1. NEXTERONE [Suspect]
     Active Substance: AMIODARONE HYDROCHLORIDE
     Indication: ATRIAL FIBRILLATION
     Dosage: 2 MONTHS PRIOR TO ADMISSION (CUMULATIVE DOSE 26.4 G)
     Route: 065

REACTIONS (1)
  - Organising pneumonia [Recovered/Resolved]
